FAERS Safety Report 7317143-5 (Version None)
Quarter: 2011Q1

REPORT INFORMATION
  Report Type: 
  Country: None (occurrence: None)
  Receive Date: 20110226
  Receipt Date: 20100929
  Transmission Date: 20110831
  Serious: No
  Sender: FDA-Public Use
  Company Number: US-ALLERGAN-1012574US

PATIENT
  Sex: Female

DRUGS (4)
  1. JUVEDERM XC [Concomitant]
     Indication: SKIN WRINKLING
  2. BOTOX COSMETIC [Suspect]
     Indication: SKIN WRINKLING
     Dosage: 6 UNITS, SINGLE
     Route: 030
     Dates: start: 20100921, end: 20100921
  3. ADDERALL 10 [Concomitant]
  4. DOXYCYCLINE [Concomitant]

REACTIONS (2)
  - INJECTION SITE SWELLING [None]
  - HYPOAESTHESIA ORAL [None]
